FAERS Safety Report 7511998-7 (Version None)
Quarter: 2011Q2

REPORT INFORMATION
  Report Type: 
  Country: None (occurrence: None)
  Receive Date: 20110531
  Receipt Date: 20110531
  Transmission Date: 20111010
  Serious: Yes (Hospitalization)
  Sender: FDA-Public Use
  Company Number: PHHO2009IN07357

PATIENT
  Age: 42 Year
  Sex: Male

DRUGS (2)
  1. FORADIL [Suspect]
     Indication: CHRONIC OBSTRUCTIVE PULMONARY DISEASE
     Dosage: DOUBLE BLIND TREATMENT PHASE
     Dates: start: 20090206, end: 20090603
  2. FORADIL [Suspect]
     Dosage: DOUBLE BLIND TREATMENT PHASE
     Dates: start: 20090610

REACTIONS (4)
  - VOMITING [None]
  - CHRONIC OBSTRUCTIVE PULMONARY DISEASE [None]
  - DYSPNOEA [None]
  - PRODUCTIVE COUGH [None]
